FAERS Safety Report 6237516-1 (Version None)
Quarter: 2009Q2

REPORT INFORMATION
  Report Type: 
  Country: None (occurrence: None)
  Receive Date: 20090619
  Receipt Date: 20090407
  Transmission Date: 20091009
  Serious: No
  Sender: FDA-Public Use
  Company Number: US-AMGEN-KDL341988

PATIENT
  Sex: Male

DRUGS (13)
  1. ARANESP [Suspect]
     Indication: DIALYSIS
  2. ALBUTEROL [Concomitant]
  3. SODIUM CHLORIDE [Concomitant]
  4. REGLAN [Concomitant]
  5. BICITRA [Concomitant]
  6. ASPIRIN [Concomitant]
  7. ENALAPRIL [Concomitant]
  8. VENOFER [Concomitant]
  9. KAYEXALATE [Concomitant]
  10. NIFEDIPINE [Concomitant]
  11. BENADRYL [Concomitant]
  12. MYLICON [Concomitant]
  13. CALCITRIOL [Concomitant]

REACTIONS (4)
  - GINGIVAL BLEEDING [None]
  - INFECTION [None]
  - LOOSE TOOTH [None]
  - THERAPEUTIC RESPONSE DECREASED [None]
